FAERS Safety Report 12268127 (Version 1)
Quarter: 2016Q2

REPORT INFORMATION
  Report Type: Spontaneous
  Country: IT (occurrence: IT)
  Receive Date: 20160414
  Receipt Date: 20160414
  Transmission Date: 20160815
  Serious: Yes (Hospitalization)
  Sender: FDA-Public Use
  Company Number: IT-REGENERON PHARMACEUTICALS, INC.-2016-15444

PATIENT

DRUGS (1)
  1. EYLEA [Suspect]
     Active Substance: AFLIBERCEPT
     Indication: MACULOPATHY
     Dosage: 1 DF, FREQUENCY OF TREATMENT WITH EYLEA IS CYCLICAL
     Route: 031
     Dates: start: 20160305, end: 20160305

REACTIONS (1)
  - Venous thrombosis limb [Unknown]

NARRATIVE: CASE EVENT DATE: 20160305
